FAERS Safety Report 12845714 (Version 1)
Quarter: 2016Q4

REPORT INFORMATION
  Report Type: Spontaneous
  Country: US (occurrence: US)
  Receive Date: 20161013
  Receipt Date: 20161013
  Transmission Date: 20170207
  Serious: No
  Sender: FDA-Public Use
  Company Number: US-BIOGEN-2016BI00302133

PATIENT
  Sex: Male

DRUGS (1)
  1. ZINBRYTA [Suspect]
     Active Substance: DACLIZUMAB
     Indication: MULTIPLE SCLEROSIS
     Route: 065
     Dates: start: 20160930

REACTIONS (3)
  - Fall [Recovered/Resolved]
  - Influenza like illness [Not Recovered/Not Resolved]
  - Diarrhoea [Unknown]
